FAERS Safety Report 4982191-7 (Version None)
Quarter: 2006Q2

REPORT INFORMATION
  Report Type: 
  Country: None (occurrence: None)
  Receive Date: 20060419
  Receipt Date: 20060327
  Transmission Date: 20061013
  Serious: Yes (Hospitalization)
  Sender: FDA-Public Use
  Company Number: US200603006500

PATIENT
  Age: 66 Year
  Sex: Female

DRUGS (2)
  1. HUMULIN U [Suspect]
     Indication: DIABETES MELLITUS
     Dosage: SUBCUTANEOUS
     Route: 058
     Dates: start: 20000101, end: 20060101
  2. ACTOS [Concomitant]

REACTIONS (2)
  - ANXIETY [None]
  - BLOOD GLUCOSE INCREASED [None]
